FAERS Safety Report 13144572 (Version 1)
Quarter: 2017Q1

REPORT INFORMATION
  Report Type: Spontaneous
  Country: US (occurrence: US)
  Receive Date: 20170124
  Receipt Date: 20170124
  Transmission Date: 20170428
  Serious: No
  Sender: FDA-Public Use
  Company Number: US-TEVA-660825USA

PATIENT
  Sex: Male

DRUGS (2)
  1. NORTHERA [Concomitant]
     Active Substance: DROXIDOPA
  2. FLUDROCORTISONE [Suspect]
     Active Substance: FLUDROCORTISONE

REACTIONS (3)
  - Hypotension [Unknown]
  - Drug dose omission [Unknown]
  - Balance disorder [Unknown]
